FAERS Safety Report 4435924-2 (Version None)
Quarter: 2004Q3

REPORT INFORMATION
  Report Type: 
  Country: None (occurrence: None)
  Receive Date: 20040726
  Receipt Date: 20040309
  Transmission Date: 20050211
  Serious: No
  Sender: FDA-Public Use
  Company Number: USA040360570

PATIENT
  Age: 88 Year
  Sex: Female
  Weight: 57 kg

DRUGS (2)
  1. FORTEO [Suspect]
     Indication: OSTEOPOROSIS
     Dosage: 20 UG/1 DAY
     Dates: start: 20040301
  2. PREDNISONE [Concomitant]

REACTIONS (3)
  - DIZZINESS [None]
  - FATIGUE [None]
  - HEART RATE INCREASED [None]
